FAERS Safety Report 15347495 (Version 1)
Quarter: 2018Q3

REPORT INFORMATION
  Report Type: Spontaneous
  Country: US (occurrence: US)
  Receive Date: 20180904
  Receipt Date: 20180904
  Transmission Date: 20181010
  Serious: No
  Sender: FDA-Public Use
  Company Number: US-BAYER-2018-158144

PATIENT
  Age: 81 Year
  Sex: Female
  Weight: 46 kg

DRUGS (8)
  1. CLARITIN?D 24 HOUR [Suspect]
     Active Substance: LORATADINE\PSEUDOEPHEDRINE SULFATE
     Indication: HYPERSENSITIVITY
     Dosage: 1 DF, UNK
     Route: 048
     Dates: start: 20180820, end: 20180820
  2. NAPROXEN. [Suspect]
     Active Substance: NAPROXEN
  3. TAMSULOSIN [Concomitant]
     Active Substance: TAMSULOSIN
  4. CLARITIN?D 24 HOUR [Suspect]
     Active Substance: LORATADINE\PSEUDOEPHEDRINE SULFATE
     Indication: NASOPHARYNGITIS
  5. CALCIUM [CALCIUM] [Concomitant]
     Active Substance: CALCIUM
  6. VITAMIN B12 [COBAMAMIDE] [Concomitant]
  7. VITAMIN C [ASCORBIC ACID] [Concomitant]
  8. BAYER ASPIRIN [Suspect]
     Active Substance: ASPIRIN
     Dosage: UNK
     Route: 048

REACTIONS (11)
  - Agitation [Unknown]
  - Agitation [Recovering/Resolving]
  - Nervousness [Recovering/Resolving]
  - Dizziness [Unknown]
  - Dyspnoea [Unknown]
  - Nervousness [Unknown]
  - Insomnia [Unknown]
  - Insomnia [Unknown]
  - Dyspnoea [Recovering/Resolving]
  - Dizziness [Recovered/Resolved]
  - Drug hypersensitivity [Unknown]

NARRATIVE: CASE EVENT DATE: 20180820
